FAERS Safety Report 17372754 (Version 11)
Quarter: 2021Q3

REPORT INFORMATION
  Report Type: Report from Study
  Country: DE (occurrence: DE)
  Receive Date: 20200205
  Receipt Date: 20210927
  Transmission Date: 20211014
  Serious: Yes (Hospitalization, Other)
  Sender: FDA-Public Use
  Company Number: DE-MYLANLABS-2020M1012929

PATIENT
  Age: 59 Year
  Sex: Female

DRUGS (18)
  1. OCREVUS [Suspect]
     Active Substance: OCRELIZUMAB
     Dosage: 600 MILLIGRAM (197 DAYS 4TH MAINTENANCE DOSE 08/MAY/2020: 600 MG)
     Route: 042
     Dates: start: 20180314
  2. OCREVUS [Suspect]
     Active Substance: OCRELIZUMAB
     Dosage: 600 MILLIGRAM (218 DAY)
     Route: 042
  3. SIRDALUD [Concomitant]
     Active Substance: TIZANIDINE
     Dosage: 1 MILLIGRAM, Q4H
  4. OCREVUS [Suspect]
     Active Substance: OCRELIZUMAB
     Dosage: 600 MILLIGRAM 4TH MAINTENANCE DOSE
     Route: 042
     Dates: start: 20200508
  5. L?THYROXIN                         /00068001/ [Concomitant]
     Active Substance: LEVOTHYROXINE
     Dosage: 100 MICROGRAM, QD
  6. OCREVUS [Suspect]
     Active Substance: OCRELIZUMAB
     Dosage: (600 MILLIGRAM, (197 DAYS), 4TH MAINTENANCE DOSE 08/MAY/2020: 600 MG NEXT INFUSION)
     Route: 042
  7. BACLOFEN. [Suspect]
     Active Substance: BACLOFEN
     Indication: MUSCLE SPASTICITY
     Dosage: UNK
     Route: 065
     Dates: start: 201904, end: 2019
  8. METHYLPREDNISOLON                  /00049601/ [Concomitant]
     Active Substance: METHYLPREDNISOLONE
     Indication: PREMEDICATION
     Dosage: UNK
  9. CITALOPRAM [Concomitant]
     Active Substance: CITALOPRAM HYDROBROMIDE
     Dosage: UNK
  10. OCREVUS [Suspect]
     Active Substance: OCRELIZUMAB
     Dosage: (300 MILLIGRAM, NEXT DOSE: 600 MG ON AN UNKNOWN DATE, 4TH MAINTENANCE DOSE 08/MAY/2020)
     Route: 042
     Dates: start: 20180314
  11. SIRDALUD [Concomitant]
     Active Substance: TIZANIDINE
     Dosage: 1 MILLIGRAM, QD
  12. FAMPYRA [Concomitant]
     Active Substance: DALFAMPRIDINE
     Dosage: UNK, BID
  13. COVID?19 VACCINE NOS. [Suspect]
     Active Substance: COVID-19 VACCINE NOS
     Indication: PRODUCT USED FOR UNKNOWN INDICATION
     Dosage: UNK
     Dates: start: 20210428
  14. FAMPYRA [Concomitant]
     Active Substance: DALFAMPRIDINE
     Dosage: 2 DOSAGE FORM, QD
     Route: 065
  15. FAMPYRA [Concomitant]
     Active Substance: DALFAMPRIDINE
     Dosage: 0.5 MILLIGRAM, QD
     Route: 065
  16. OCREVUS [Suspect]
     Active Substance: OCRELIZUMAB
     Indication: PRIMARY PROGRESSIVE MULTIPLE SCLEROSIS
     Dosage: 600 MILLIGRAM, (197 DAYS), NEXT DOSE: 600 MG ON AN UNKNOWN DATE, 08/MAY/2020
     Route: 042
     Dates: start: 20180304
  17. PARACETAMOL [Concomitant]
     Active Substance: ACETAMINOPHEN
     Indication: PREMEDICATION
     Dosage: UNK
  18. FAMPYRA [Concomitant]
     Active Substance: DALFAMPRIDINE
     Dosage: 0.5 MILLIGRAM (1?0?1)
     Route: 065

REACTIONS (28)
  - Gait disturbance [Not Recovered/Not Resolved]
  - Anxiety [Recovering/Resolving]
  - Tooth infection [Recovered/Resolved]
  - Spondylolisthesis [Not Recovered/Not Resolved]
  - Ligament injury [Not Recovered/Not Resolved]
  - Cervical vertebral fracture [Recovered/Resolved]
  - Fatigue [Recovered/Resolved]
  - Pain in extremity [Recovered/Resolved]
  - Rhinorrhoea [Recovered/Resolved]
  - Haemorrhage [Recovered/Resolved]
  - Sleep disorder [Recovering/Resolving]
  - Hypoaesthesia [Not Recovered/Not Resolved]
  - Muscle spasticity [Recovered/Resolved]
  - Panic attack [Recovering/Resolving]
  - Injection site haematoma [Recovered/Resolved]
  - Pain [Recovered/Resolved]
  - Nasopharyngitis [Recovering/Resolving]
  - Trigeminal neuralgia [Recovered/Resolved]
  - Blood blister [Recovered/Resolved]
  - Fall [Unknown]
  - Intervertebral disc protrusion [Not Recovered/Not Resolved]
  - Balance disorder [Not Recovered/Not Resolved]
  - Spinal disorder [Unknown]
  - Feeling cold [Not Recovered/Not Resolved]
  - Bone cyst [Unknown]
  - Depression [Recovering/Resolving]
  - Peroneal nerve palsy [Not Recovered/Not Resolved]
  - Urticaria [Recovered/Resolved]

NARRATIVE: CASE EVENT DATE: 20180315
